FAERS Safety Report 10265761 (Version 4)
Quarter: 2014Q3

REPORT INFORMATION
  Report Type: Spontaneous
  Country: JP (occurrence: JP)
  Receive Date: 20140627
  Receipt Date: 20140807
  Transmission Date: 20150326
  Serious: Yes (Other)
  Sender: FDA-Public Use
  Company Number: JP-BRISTOL-MYERS SQUIBB COMPANY-21085253

PATIENT
  Age: 67 Year
  Sex: Female

DRUGS (4)
  1. METGLUCO [Suspect]
     Active Substance: METFORMIN HYDROCHLORIDE
     Indication: DIABETES MELLITUS
     Route: 048
  2. AMARYL [Concomitant]
     Active Substance: GLIMEPIRIDE
     Route: 048
  3. IPRAGLIFLOZIN [Suspect]
     Active Substance: IPRAGLIFLOZIN
     Route: 048
  4. VILDAGLIPTIN [Concomitant]
     Active Substance: VILDAGLIPTIN
     Route: 048

REACTIONS (2)
  - Pyrexia [Unknown]
  - Urine ketone body present [Unknown]

NARRATIVE: CASE EVENT DATE: 20140609
